FAERS Safety Report 4547118-0 (Version None)
Quarter: 2005Q1

REPORT INFORMATION
  Report Type: 
  Country: None (occurrence: None)
  Receive Date: 20050107
  Receipt Date: 20041201
  Transmission Date: 20050727
  Serious: Yes (Hospitalization, Other)
  Sender: FDA-Public Use
  Company Number: JP-BRISTOL-MYERS SQUIBB COMPANY-12781860

PATIENT
  Age: 54 Year
  Sex: Female

DRUGS (5)
  1. HYDREA [Suspect]
     Indication: ESSENTIAL THROMBOCYTHAEMIA
     Route: 048
     Dates: start: 19980301, end: 20020621
  2. CYMERIN [Concomitant]
     Indication: ESSENTIAL THROMBOCYTHAEMIA
     Route: 041
     Dates: start: 19980301
  3. PROCYLIN [Concomitant]
     Route: 048
  4. BEZATOL [Concomitant]
     Route: 048
  5. CALSLOT [Concomitant]
     Route: 048

REACTIONS (3)
  - CHLOASMA [None]
  - NECROBIOSIS LIPOIDICA DIABETICORUM [None]
  - SKIN ULCER [None]
